FAERS Safety Report 12163283 (Version 4)
Quarter: 2016Q2

REPORT INFORMATION
  Report Type: Spontaneous
  Country: AT (occurrence: AT)
  Receive Date: 20160309
  Receipt Date: 20160510
  Transmission Date: 20160815
  Serious: Yes (Other)
  Sender: FDA-Public Use
  Company Number: AT-AMGEN-AUTSP2016027560

PATIENT
  Age: 22 Year
  Sex: Female
  Weight: 70 kg

DRUGS (12)
  1. FOLSAN [Concomitant]
     Active Substance: FOLIC ACID
     Indication: PRODUCT SUBSTITUTION
     Dosage: 5 MG, UNK
     Route: 048
  2. ARANESP [Suspect]
     Active Substance: DARBEPOETIN ALFA
     Indication: NEPHROGENIC ANAEMIA
     Dosage: 60 MUG, QWK
     Route: 058
     Dates: start: 20110801
  3. FOSRENOL [Concomitant]
     Active Substance: LANTHANUM CARBONATE
     Indication: HYPERPHOSPHATAEMIA
     Dosage: UNK
     Route: 065
  4. ACEMIN [Concomitant]
     Active Substance: LISINOPRIL
     Dosage: UNK
     Route: 065
  5. SULFAMETROL [Concomitant]
     Dosage: UNK
     Route: 065
  6. DILATREND [Concomitant]
     Active Substance: CARVEDILOL
     Indication: HYPERTENSION
     Dosage: 12.5 MG, UNK
     Route: 048
  7. LASIX [Concomitant]
     Active Substance: FUROSEMIDE
     Indication: HYPERPHOSPHATAEMIA
     Dosage: UNK
     Route: 065
  8. RENVELA [Concomitant]
     Active Substance: SEVELAMER CARBONATE
     Indication: HYPERPHOSPHATAEMIA
     Dosage: UNK
     Route: 065
  9. AMLODIPIN [Concomitant]
     Active Substance: AMLODIPINE BESYLATE
     Indication: HYPERTENSION
     Dosage: 10 MG, UNK
     Route: 048
  10. CYCLOPHOSPHAMIDE. [Concomitant]
     Active Substance: CYCLOPHOSPHAMIDE
     Dosage: UNK
     Route: 065
  11. TRIMETHOPRIM. [Concomitant]
     Active Substance: TRIMETHOPRIM
     Dosage: UNK
     Route: 065
  12. DREISAVIT [Concomitant]
     Dosage: UNK
     Route: 065

REACTIONS (8)
  - Transplant rejection [Unknown]
  - Pancytopenia [Unknown]
  - Haemoglobin decreased [Not Recovered/Not Resolved]
  - Drug effect incomplete [Not Recovered/Not Resolved]
  - Graft loss [Unknown]
  - Haemodialysis [Recovered/Resolved]
  - Peritoneal dialysis [Recovered/Resolved]
  - Aplasia pure red cell [Unknown]

NARRATIVE: CASE EVENT DATE: 201108
